FAERS Safety Report 7151099-3 (Version None)
Quarter: 2010Q4

REPORT INFORMATION
  Report Type: 
  Country: None (occurrence: None)
  Receive Date: 20101210
  Receipt Date: 20101130
  Transmission Date: 20110411
  Serious: Yes (Death, Hospitalization, Other)
  Sender: FDA-Public Use
  Company Number: JP-JNJFOC-20100404949

PATIENT
  Sex: Female
  Weight: 43 kg

DRUGS (7)
  1. DOXORUBICIN HCL (CAELYX) [Suspect]
     Indication: OVARIAN CANCER RECURRENT
     Dosage: CYCLE 4
     Route: 042
  2. DOXORUBICIN HCL (CAELYX) [Suspect]
     Dosage: CYCLE 3
     Route: 042
  3. DOXORUBICIN HCL (CAELYX) [Suspect]
     Dosage: CYCLE 2
     Route: 042
  4. DOXORUBICIN HCL (CAELYX) [Suspect]
     Dosage: CYCLE 1
     Route: 042
  5. MAGNESIUM OXIDE [Concomitant]
     Indication: PROPHYLAXIS
     Route: 048
  6. VOLTAREN [Concomitant]
     Route: 048
  7. SELBEX [Concomitant]
     Indication: PROPHYLAXIS
     Route: 048

REACTIONS (3)
  - INTESTINAL OBSTRUCTION [None]
  - OVARIAN CANCER [None]
  - WHITE BLOOD CELL COUNT DECREASED [None]
